FAERS Safety Report 10239816 (Version 3)
Quarter: 2014Q3

REPORT INFORMATION
  Report Type: Spontaneous
  Country: US (occurrence: None)
  Receive Date: 20140612
  Receipt Date: 20140710
  Transmission Date: 20150326
  Serious: Yes (Hospitalization)
  Sender: FDA-Public Use
  Company Number: 2014-US-006624

PATIENT
  Age: 38 Year
  Sex: Female

DRUGS (4)
  1. KLONOPIN [Concomitant]
     Active Substance: CLONAZEPAM
  2. SUPPLEMENTS (SUPPLEMENTS) [Concomitant]
  3. XYREM [Suspect]
     Active Substance: SODIUM OXYBATE
     Indication: INSOMNIA
     Route: 048
     Dates: start: 20140522, end: 201405
  4. LYRICA [Concomitant]
     Active Substance: PREGABALIN

REACTIONS (3)
  - Lyme disease [None]
  - Condition aggravated [None]
  - Off label use [None]

NARRATIVE: CASE EVENT DATE: 201405
